FAERS Safety Report 8154850-9 (Version None)
Quarter: 2012Q1

REPORT INFORMATION
  Report Type: 
  Country: None (occurrence: None)
  Receive Date: 20120221
  Receipt Date: 20120214
  Transmission Date: 20120608
  Serious: Yes (Other)
  Sender: FDA-Public Use
  Company Number: PHHY2011CA90211

PATIENT
  Sex: Female

DRUGS (1)
  1. ZOLEDRONOC ACID [Suspect]
     Indication: OSTEOPOROSIS
     Dosage: 5 MG, UNK
     Route: 042
     Dates: start: 20101111

REACTIONS (6)
  - BONE DISORDER [None]
  - VASCULAR RUPTURE [None]
  - FRACTURED SACRUM [None]
  - GAIT DISTURBANCE [None]
  - OSTEOPOROSIS [None]
  - BONE PAIN [None]
